FAERS Safety Report 16284186 (Version 1)
Quarter: 2019Q2

REPORT INFORMATION
  Report Type: Report from Study
  Country: JP (occurrence: JP)
  Receive Date: 20190507
  Receipt Date: 20190507
  Transmission Date: 20190711
  Serious: Yes (Hospitalization, Other)
  Sender: FDA-Public Use
  Company Number: JP-ALXN-A201806505AA

PATIENT

DRUGS (5)
  1. NEORAL [Concomitant]
     Active Substance: CYCLOSPORINE
     Indication: PAROXYSMAL NOCTURNAL HAEMOGLOBINURIA
     Dosage: 200 MG, DAILY
     Route: 065
     Dates: end: 20190328
  2. NEORAL [Concomitant]
     Active Substance: CYCLOSPORINE
     Dosage: 100 MG, DAILY
     Route: 065
     Dates: start: 20190329
  3. SOLIRIS [Suspect]
     Active Substance: ECULIZUMAB
     Indication: PAROXYSMAL NOCTURNAL HAEMOGLOBINURIA
     Dosage: 600 MG, QW
     Route: 042
     Dates: start: 20140820, end: 20140910
  4. SOLIRIS [Suspect]
     Active Substance: ECULIZUMAB
     Dosage: 900 MG, Q2W
     Route: 042
     Dates: start: 20140917
  5. NESP [Concomitant]
     Active Substance: DARBEPOETIN ALFA
     Indication: PAROXYSMAL NOCTURNAL HAEMOGLOBINURIA
     Dosage: 30 ?G, DAILY
     Route: 065
     Dates: start: 20180912

REACTIONS (4)
  - Pneumonia [Recovered/Resolved]
  - Pneumonia [Recovering/Resolving]
  - Organising pneumonia [Unknown]
  - Anaemia [Not Recovered/Not Resolved]

NARRATIVE: CASE EVENT DATE: 20180523
